FAERS Safety Report 9038006 (Version 1)
Quarter: 2013Q1

REPORT INFORMATION
  Report Type: Report from Study
  Country: US (occurrence: US)
  Receive Date: 20130129
  Receipt Date: 20130129
  Transmission Date: 20140127
  Serious: No
  Sender: FDA-Public Use
  Company Number: US-ABBOTT-12P-163-0923234-00

PATIENT
  Age: 67 Year
  Sex: Female

DRUGS (22)
  1. HUMIRA 40 MG/0.8 ML PEN [Suspect]
     Indication: RHEUMATOID ARTHRITIS
     Dates: start: 20120112
  2. PREDNISONE [Concomitant]
     Indication: RHEUMATOID ARTHRITIS
     Dosage: 40 MG DAILY
  3. PREDNISONE [Concomitant]
     Dosage: 13 MG DAILY, TAPERING DOSE
  4. FENOFIBRATE [Concomitant]
     Indication: BLOOD CHOLESTEROL INCREASED
     Dosage: 134 MG DAILY
  5. OMEPRAZOLE [Concomitant]
     Indication: GASTRITIS
  6. FOLIC ACID [Concomitant]
     Indication: VITAMIN SUPPLEMENTATION
  7. METHOTREXATE [Concomitant]
     Indication: RHEUMATOID ARTHRITIS
     Dosage: 2.5 MG X 7 WEEKLY
  8. ATORVASTATIN [Concomitant]
     Indication: BLOOD CHOLESTEROL INCREASED
     Dosage: 40 MG DAILY
  9. VITAMIN D2 [Concomitant]
     Indication: VITAMIN D ABNORMAL
  10. ALENDRONATE [Concomitant]
     Indication: OSTEOPOROSIS
     Dosage: WEEKLY
  11. HYDROCHLOROTHIAZIDE [Concomitant]
     Indication: FLUID OVERLOAD
     Dosage: 25 MG DAILY
  12. KLORCON 8 ER [Concomitant]
     Indication: MINERAL SUPPLEMENTATION
  13. COMBIGAN EYE GTTS [Concomitant]
     Indication: GLAUCOMA
     Dosage: 1 DROP TWICE DAILY IN LEFT EYE
  14. LATANOPROST [Concomitant]
     Indication: SENSATION OF PRESSURE
     Dosage: ONE DROP IN EVENING IN LEFT EYE
  15. ZOLPIDEM [Concomitant]
     Indication: INSOMNIA
  16. ASA [Concomitant]
     Indication: PROPHYLAXIS
     Dosage: 81 MG DAILY
  17. FISH OIL [Concomitant]
     Indication: VITAMIN SUPPLEMENTATION
  18. MULTIVITAMIN [Concomitant]
     Indication: VITAMIN SUPPLEMENTATION
     Dosage: DAILY
  19. CALCIUM 600 PLUS VITAMIN D [Concomitant]
     Indication: MINERAL SUPPLEMENTATION
  20. 12 HOUR ZYRTEC D (GENERIC) [Concomitant]
     Indication: SINUS DISORDER
     Dosage: DAILY
  21. SALINE SOLUTION [Concomitant]
     Indication: SINUS DISORDER
     Route: 045
  22. MIRALAX (GENERIC FORM) [Concomitant]
     Indication: PRODUCT USED FOR UNKNOWN INDICATION
     Dosage: DAILY, AS REQUIRED

REACTIONS (5)
  - Rash macular [Not Recovered/Not Resolved]
  - Sinusitis [Unknown]
  - Oedema peripheral [Unknown]
  - Fatigue [Unknown]
  - Blood cortisol decreased [Unknown]
